FAERS Safety Report 12918675 (Version 2)
Quarter: 2018Q1

REPORT INFORMATION
  Report Type: Spontaneous
  Country: US (occurrence: US)
  Receive Date: 20161107
  Receipt Date: 20180308
  Transmission Date: 20180508
  Serious: Yes (Other)
  Sender: FDA-Public Use
  Company Number: US-PFIZER INC-2016508625

PATIENT
  Age: 51 Year
  Sex: Female

DRUGS (1)
  1. SOLU-MEDROL [Suspect]
     Active Substance: METHYLPREDNISOLONE SODIUM SUCCINATE
     Dosage: UNK

REACTIONS (7)
  - Blood glucose abnormal [Unknown]
  - Condition aggravated [Unknown]
  - Insomnia [Unknown]
  - Drug ineffective [Unknown]
  - Multiple sclerosis [Unknown]
  - Anxiety [Unknown]
  - Blood pressure abnormal [Unknown]
